FAERS Safety Report 9687650 (Version 2)
Quarter: 2013Q4

REPORT INFORMATION
  Report Type: Spontaneous
  Country: US (occurrence: US)
  Receive Date: 20131114
  Receipt Date: 20131120
  Transmission Date: 20140711
  Serious: No
  Sender: FDA-Public Use
  Company Number: US-PFIZER INC-2013324562

PATIENT
  Age: 51 Year
  Sex: Female
  Weight: 61.68 kg

DRUGS (2)
  1. LYRICA [Suspect]
     Indication: PSORIATIC ARTHROPATHY
     Dosage: 75 MG, 1X/DAY
     Dates: start: 201304
  2. LYRICA [Suspect]
     Dosage: 50 MG, 2X/DAY
     Dates: start: 201311

REACTIONS (2)
  - Off label use [Unknown]
  - Anxiety [Unknown]
